FAERS Safety Report 21890379 (Version 1)
Quarter: 2023Q1

REPORT INFORMATION
  Report Type: Spontaneous
  Country: US (occurrence: US)
  Receive Date: 20230120
  Receipt Date: 20230120
  Transmission Date: 20230418
  Serious: Yes (Life-Threatening, Other)
  Sender: FDA-Public Use
  Company Number: US-PFIZER INC-PV202300012048

PATIENT
  Age: 89 Year
  Sex: Female

DRUGS (1)
  1. MEROPENEM [Suspect]
     Active Substance: MEROPENEM
     Dosage: 1 G, Q8H

REACTIONS (4)
  - Psychotic disorder [Unknown]
  - Persecutory delusion [Unknown]
  - Dyspnoea [Unknown]
  - Irritability [Unknown]
